FAERS Safety Report 16184512 (Version 1)
Quarter: 2019Q2

REPORT INFORMATION
  Report Type: Spontaneous
  Country: US (occurrence: US)
  Receive Date: 20190308
  Receipt Date: 20190308
  Transmission Date: 20190711
  Serious: Yes (Hospitalization)
  Sender: FDA-Public Use
  Company Number: None

PATIENT
  Age: 57 Year
  Sex: Female

DRUGS (1)
  1. GLATIRAMER 40 MG  PFS INJ (12/BOX) [Suspect]
     Active Substance: GLATIRAMER
     Route: 058
     Dates: start: 201903

REACTIONS (3)
  - Dyspnoea [None]
  - Product substitution issue [None]
  - Lip swelling [None]

NARRATIVE: CASE EVENT DATE: 20190308
